FAERS Safety Report 12012802 (Version 23)
Quarter: 2017Q2

REPORT INFORMATION
  Report Type: Spontaneous
  Country: US (occurrence: US)
  Receive Date: 20160205
  Receipt Date: 20170530
  Transmission Date: 20170829
  Serious: Yes (Hospitalization, Other)
  Sender: FDA-Public Use
  Company Number: US-BAUSCH-BL-2015-026981

PATIENT
  Age: 52 Year
  Sex: Male

DRUGS (92)
  1. RUCONEST [Suspect]
     Active Substance: HUMAN C1-ESTERASE INHIBITOR
     Indication: HEREDITARY ANGIOEDEMA
     Dosage: ONCE TO TWICE A WEEK AS NEEDED
     Route: 042
     Dates: start: 20150805
  2. RUCONEST [Suspect]
     Active Substance: HUMAN C1-ESTERASE INHIBITOR
     Indication: PROPHYLAXIS
     Dosage: AS NEEDED
     Route: 042
     Dates: start: 20150922, end: 20150922
  3. RUCONEST [Suspect]
     Active Substance: HUMAN C1-ESTERASE INHIBITOR
     Indication: COMPLEMENT FACTOR ABNORMAL
     Dosage: AS NEEDED
     Route: 042
     Dates: start: 201511, end: 201511
  4. RUCONEST [Suspect]
     Active Substance: HUMAN C1-ESTERASE INHIBITOR
     Route: 042
     Dates: start: 2016
  5. RUCONEST [Suspect]
     Active Substance: HUMAN C1-ESTERASE INHIBITOR
     Dosage: ONE DOSE
     Route: 042
     Dates: start: 20160414, end: 20160414
  6. RUCONEST [Suspect]
     Active Substance: HUMAN C1-ESTERASE INHIBITOR
     Dosage: AS NEEDED
     Route: 042
     Dates: start: 201605
  7. RUCONEST [Suspect]
     Active Substance: HUMAN C1-ESTERASE INHIBITOR
     Dosage: 4200 UNITS AS NEEDED
     Route: 042
     Dates: start: 20160708, end: 20160708
  8. RUCONEST [Suspect]
     Active Substance: HUMAN C1-ESTERASE INHIBITOR
     Route: 042
     Dates: start: 20160804, end: 20160804
  9. RUCONEST [Suspect]
     Active Substance: HUMAN C1-ESTERASE INHIBITOR
     Route: 042
     Dates: start: 20160811, end: 20160811
  10. RUCONEST [Suspect]
     Active Substance: HUMAN C1-ESTERASE INHIBITOR
     Dosage: TWICE A WEEK
     Route: 042
     Dates: start: 201610
  11. RUCONEST [Suspect]
     Active Substance: HUMAN C1-ESTERASE INHIBITOR
     Route: 042
     Dates: start: 20161109
  12. FIRAZYR [Concomitant]
     Active Substance: ICATIBANT ACETATE
     Dates: start: 20161010
  13. FIRAZYR [Concomitant]
     Active Substance: ICATIBANT ACETATE
     Dates: start: 20170411
  14. BENADRYL [Concomitant]
     Active Substance: DIPHENHYDRAMINE HYDROCHLORIDE
     Indication: PRODUCT USED FOR UNKNOWN INDICATION
     Dates: start: 20160807
  15. KALBITOR [Concomitant]
     Active Substance: ECALLANTIDE
     Dates: start: 20160922
  16. BERINERT [Concomitant]
     Active Substance: HUMAN C1-ESTERASE INHIBITOR
     Dates: start: 20170417
  17. BERINERT [Concomitant]
     Active Substance: HUMAN C1-ESTERASE INHIBITOR
     Dates: start: 20170510
  18. RUCONEST [Suspect]
     Active Substance: HUMAN C1-ESTERASE INHIBITOR
     Route: 042
     Dates: start: 20160813, end: 20160813
  19. RUCONEST [Suspect]
     Active Substance: HUMAN C1-ESTERASE INHIBITOR
     Route: 042
     Dates: start: 20161029
  20. RUCONEST [Suspect]
     Active Substance: HUMAN C1-ESTERASE INHIBITOR
     Route: 042
     Dates: start: 20161114, end: 20161114
  21. FIRAZYR [Concomitant]
     Active Substance: ICATIBANT ACETATE
     Dates: start: 20161204
  22. DILAUDID [Concomitant]
     Active Substance: HYDROMORPHONE HYDROCHLORIDE
     Dates: start: 20160808
  23. RUCONEST [Suspect]
     Active Substance: HUMAN C1-ESTERASE INHIBITOR
     Route: 042
     Dates: start: 201511
  24. RUCONEST [Suspect]
     Active Substance: HUMAN C1-ESTERASE INHIBITOR
     Route: 042
     Dates: start: 20160812, end: 20160812
  25. RUCONEST [Suspect]
     Active Substance: HUMAN C1-ESTERASE INHIBITOR
     Route: 042
     Dates: start: 20161006
  26. RUCONEST [Suspect]
     Active Substance: HUMAN C1-ESTERASE INHIBITOR
     Route: 042
     Dates: start: 20161028
  27. FIRAZYR [Concomitant]
     Active Substance: ICATIBANT ACETATE
     Dates: start: 20161206
  28. FIRAZYR [Concomitant]
     Active Substance: ICATIBANT ACETATE
     Dates: start: 20161216
  29. FIRAZYR [Concomitant]
     Active Substance: ICATIBANT ACETATE
     Dates: start: 20170410
  30. FIRAZYR [Concomitant]
     Active Substance: ICATIBANT ACETATE
     Dates: start: 20170511
  31. BERINERT [Concomitant]
     Active Substance: HUMAN C1-ESTERASE INHIBITOR
     Dates: start: 20170511
  32. METHOCARBAMOL. [Concomitant]
     Active Substance: METHOCARBAMOL
     Indication: PRODUCT USED FOR UNKNOWN INDICATION
  33. RUCONEST [Suspect]
     Active Substance: HUMAN C1-ESTERASE INHIBITOR
     Indication: LOCAL SWELLING
     Dosage: ONCE TO TWICE A WEEK
     Route: 042
     Dates: start: 20151021
  34. RUCONEST [Suspect]
     Active Substance: HUMAN C1-ESTERASE INHIBITOR
     Route: 042
     Dates: start: 20160814, end: 20160814
  35. RUCONEST [Suspect]
     Active Substance: HUMAN C1-ESTERASE INHIBITOR
     Route: 042
     Dates: start: 20160921, end: 20160921
  36. RUCONEST [Suspect]
     Active Substance: HUMAN C1-ESTERASE INHIBITOR
     Route: 042
     Dates: start: 20161116, end: 20161116
  37. RUCONEST [Suspect]
     Active Substance: HUMAN C1-ESTERASE INHIBITOR
     Route: 042
     Dates: start: 20161118
  38. RUCONEST [Suspect]
     Active Substance: HUMAN C1-ESTERASE INHIBITOR
     Dosage: ONE DOSE EVERY OTHER DAY
     Route: 042
     Dates: start: 20170417
  39. FIRAZYR [Concomitant]
     Active Substance: ICATIBANT ACETATE
     Dates: start: 20160810
  40. FIRAZYR [Concomitant]
     Active Substance: ICATIBANT ACETATE
     Dates: start: 20170316
  41. BENADRYL [Concomitant]
     Active Substance: DIPHENHYDRAMINE HYDROCHLORIDE
     Dates: start: 20161115
  42. PHENERGAN [Concomitant]
     Active Substance: PROMETHAZINE HYDROCHLORIDE
     Indication: PRODUCT USED FOR UNKNOWN INDICATION
     Dates: start: 20160807
  43. KALBITOR [Concomitant]
     Active Substance: ECALLANTIDE
     Indication: PRODUCT USED FOR UNKNOWN INDICATION
     Dates: start: 20160807
  44. BERINERT [Concomitant]
     Active Substance: HUMAN C1-ESTERASE INHIBITOR
     Indication: ABDOMINAL DISTENSION
     Dates: start: 201612
  45. BERINERT [Concomitant]
     Active Substance: HUMAN C1-ESTERASE INHIBITOR
     Dates: start: 20170311
  46. RUCONEST [Suspect]
     Active Substance: HUMAN C1-ESTERASE INHIBITOR
     Indication: TESTICULAR SWELLING
     Dosage: AS NEEDED
     Route: 042
     Dates: start: 20151008, end: 20151008
  47. RUCONEST [Suspect]
     Active Substance: HUMAN C1-ESTERASE INHIBITOR
     Route: 042
     Dates: start: 20160803, end: 20160803
  48. RUCONEST [Suspect]
     Active Substance: HUMAN C1-ESTERASE INHIBITOR
     Route: 042
     Dates: start: 20160806, end: 20160806
  49. RUCONEST [Suspect]
     Active Substance: HUMAN C1-ESTERASE INHIBITOR
     Route: 042
     Dates: start: 201610
  50. FIRAZYR [Concomitant]
     Active Substance: ICATIBANT ACETATE
     Indication: MALAISE
     Dates: start: 20160809
  51. FIRAZYR [Concomitant]
     Active Substance: ICATIBANT ACETATE
     Dates: start: 20161029
  52. DILAUDID [Concomitant]
     Active Substance: HYDROMORPHONE HYDROCHLORIDE
     Dates: start: 20160922
  53. BENADRYL [Concomitant]
     Active Substance: DIPHENHYDRAMINE HYDROCHLORIDE
     Dates: start: 20161116
  54. PHENERGAN [Concomitant]
     Active Substance: PROMETHAZINE HYDROCHLORIDE
     Dates: start: 20160808
  55. BERINERT [Concomitant]
     Active Substance: HUMAN C1-ESTERASE INHIBITOR
     Indication: LOCAL SWELLING
     Dates: start: 20170101
  56. BERINERT [Concomitant]
     Active Substance: HUMAN C1-ESTERASE INHIBITOR
     Dates: start: 20170222
  57. BERINERT [Concomitant]
     Active Substance: HUMAN C1-ESTERASE INHIBITOR
     Dates: start: 20170416
  58. RUCONEST [Suspect]
     Active Substance: HUMAN C1-ESTERASE INHIBITOR
     Route: 042
     Dates: start: 20161023
  59. RUCONEST [Suspect]
     Active Substance: HUMAN C1-ESTERASE INHIBITOR
     Route: 042
     Dates: start: 20161030
  60. RUCONEST [Suspect]
     Active Substance: HUMAN C1-ESTERASE INHIBITOR
     Route: 042
     Dates: start: 20161205, end: 20161205
  61. RUCONEST [Suspect]
     Active Substance: HUMAN C1-ESTERASE INHIBITOR
     Route: 042
     Dates: start: 20170310
  62. RUCONEST [Suspect]
     Active Substance: HUMAN C1-ESTERASE INHIBITOR
     Dosage: ONE DOSE
     Route: 042
     Dates: start: 20170409
  63. RUCONEST [Suspect]
     Active Substance: HUMAN C1-ESTERASE INHIBITOR
     Route: 042
     Dates: start: 20170510
  64. FIRAZYR [Concomitant]
     Active Substance: ICATIBANT ACETATE
     Dates: start: 201610
  65. FIRAZYR [Concomitant]
     Active Substance: ICATIBANT ACETATE
     Dates: start: 20161030
  66. FIRAZYR [Concomitant]
     Active Substance: ICATIBANT ACETATE
     Dosage: ONE DOSE EVERY OTHER DAY
     Dates: start: 20170417
  67. PHENERGAN [Concomitant]
     Active Substance: PROMETHAZINE HYDROCHLORIDE
     Dates: start: 20160922
  68. BERINERT [Concomitant]
     Active Substance: HUMAN C1-ESTERASE INHIBITOR
     Indication: SWELLING
     Dates: start: 20161230
  69. BACLOFEN. [Concomitant]
     Active Substance: BACLOFEN
     Indication: PRODUCT USED FOR UNKNOWN INDICATION
  70. RUCONEST [Suspect]
     Active Substance: HUMAN C1-ESTERASE INHIBITOR
     Dosage: 4200 IU THREE TIMES A WEEK OR WHEN REQUIRED.
     Route: 042
     Dates: start: 201511, end: 201511
  71. RUCONEST [Suspect]
     Active Substance: HUMAN C1-ESTERASE INHIBITOR
     Route: 042
     Dates: start: 20161021
  72. RUCONEST [Suspect]
     Active Substance: HUMAN C1-ESTERASE INHIBITOR
     Route: 042
     Dates: start: 20161204, end: 20161204
  73. RUCONEST [Suspect]
     Active Substance: HUMAN C1-ESTERASE INHIBITOR
     Dosage: ONE DOSE EVERY OTHER DAY
     Route: 042
     Dates: start: 20170418
  74. FIRAZYR [Concomitant]
     Active Substance: ICATIBANT ACETATE
     Dates: start: 20161226
  75. FIRAZYR [Concomitant]
     Active Substance: ICATIBANT ACETATE
     Dates: start: 20170222
  76. DILAUDID [Concomitant]
     Active Substance: HYDROMORPHONE HYDROCHLORIDE
     Dates: start: 20170409
  77. BENADRYL [Concomitant]
     Active Substance: DIPHENHYDRAMINE HYDROCHLORIDE
     Dates: start: 20160808
  78. KALBITOR [Concomitant]
     Active Substance: ECALLANTIDE
     Dates: start: 20160808
  79. BERINERT [Concomitant]
     Active Substance: HUMAN C1-ESTERASE INHIBITOR
     Dates: start: 20170408
  80. NORCO [Concomitant]
     Active Substance: ACETAMINOPHEN\HYDROCODONE BITARTRATE
     Indication: PRODUCT USED FOR UNKNOWN INDICATION
  81. RUCONEST [Suspect]
     Active Substance: HUMAN C1-ESTERASE INHIBITOR
     Route: 042
     Dates: start: 20160805, end: 20160805
  82. RUCONEST [Suspect]
     Active Substance: HUMAN C1-ESTERASE INHIBITOR
     Route: 042
     Dates: start: 20161022
  83. RUCONEST [Suspect]
     Active Substance: HUMAN C1-ESTERASE INHIBITOR
     Route: 042
     Dates: start: 20161115, end: 20161115
  84. FIRAZYR [Concomitant]
     Active Substance: ICATIBANT ACETATE
     Indication: GASTRIC DISORDER
     Dates: start: 20160708
  85. FIRAZYR [Concomitant]
     Active Substance: ICATIBANT ACETATE
     Dates: start: 20161227
  86. FIRAZYR [Concomitant]
     Active Substance: ICATIBANT ACETATE
     Dates: start: 201703
  87. FIRAZYR [Concomitant]
     Active Substance: ICATIBANT ACETATE
     Dates: start: 20170311
  88. DILAUDID [Concomitant]
     Active Substance: HYDROMORPHONE HYDROCHLORIDE
     Indication: PAIN
     Dates: start: 20160807
  89. BERINERT [Concomitant]
     Active Substance: HUMAN C1-ESTERASE INHIBITOR
     Dates: start: 201703
  90. BERINERT [Concomitant]
     Active Substance: HUMAN C1-ESTERASE INHIBITOR
     Dates: start: 20170411
  91. AMLODIPINE [Concomitant]
     Active Substance: AMLODIPINE BESYLATE
     Indication: BLOOD PRESSURE ABNORMAL
  92. LOSARTAN. [Concomitant]
     Active Substance: LOSARTAN
     Indication: BLOOD PRESSURE ABNORMAL

REACTIONS (11)
  - Oral surgery [Unknown]
  - Abdominal pain upper [Unknown]
  - Sepsis [Unknown]
  - Rash macular [Not Recovered/Not Resolved]
  - Device related infection [Unknown]
  - Dehydration [Unknown]
  - Rash [Not Recovered/Not Resolved]
  - Drug effect decreased [Unknown]
  - Thrombosis [Unknown]
  - Intentional product misuse [Unknown]
  - White blood cell count increased [Unknown]

NARRATIVE: CASE EVENT DATE: 2016
